FAERS Safety Report 7504800-0 (Version None)
Quarter: 2011Q2

REPORT INFORMATION
  Report Type: 
  Country: None (occurrence: None)
  Receive Date: 20110525
  Receipt Date: 20101117
  Transmission Date: 20111010
  Serious: Yes (Life-Threatening, Hospitalization)
  Sender: FDA-Public Use
  Company Number: US-AMGEN-USASP2010004360

PATIENT
  Sex: Female
  Weight: 110 kg

DRUGS (5)
  1. VINCRISTINE [Concomitant]
  2. ARANESP [Suspect]
     Indication: CHRONIC LYMPHOCYTIC LEUKAEMIA
     Dosage: 200 MG, UNK
     Route: 058
     Dates: start: 20101026
  3. ARANESP [Suspect]
     Dates: start: 20100101
  4. RITUXIMAB [Concomitant]
  5. ARANESP [Suspect]
     Indication: ANAEMIA OF MALIGNANT DISEASE
     Dosage: 200 MG, UNK
     Route: 058
     Dates: start: 20101012

REACTIONS (2)
  - ANAEMIA [None]
  - APLASIA PURE RED CELL [None]
